FAERS Safety Report 8972771 (Version 1)
Quarter: 2012Q4

REPORT INFORMATION
  Report Type: 
  Country: US (occurrence: US)
  Receive Date: 20121219
  Receipt Date: 20121219
  Transmission Date: 20130627
  Serious: Yes (Hospitalization)
  Sender: FDA-Public Use
  Company Number: US-BAYER-2012-131864

PATIENT
  Age: 47 Year
  Sex: Female

DRUGS (7)
  1. YAZ [Suspect]
  2. CLARITIN [Concomitant]
  3. PROZAC [Concomitant]
     Indication: DEPRESSION
  4. MULTIVITAMIN [Concomitant]
  5. ATIVAN [Concomitant]
     Dosage: 1 mg, PRN
  6. CALCIUM [Concomitant]
  7. IRON [Concomitant]

REACTIONS (2)
  - Pulmonary embolism [None]
  - Deep vein thrombosis [None]
